FAERS Safety Report 14208419 (Version 4)
Quarter: 2018Q1

REPORT INFORMATION
  Report Type: Report from Study
  Country: MX (occurrence: MX)
  Receive Date: 20171121
  Receipt Date: 20180305
  Transmission Date: 20180508
  Serious: Yes (Hospitalization, Other)
  Sender: FDA-Public Use
  Company Number: MX-BAYER-2017-191632

PATIENT
  Age: 53 Year
  Sex: Male
  Weight: 70 kg

DRUGS (4)
  1. BEPANTHEN (DEXPANTHENOL) [Suspect]
     Active Substance: DEXPANTHENOL
  2. NEXAVAR [Suspect]
     Active Substance: SORAFENIB
     Indication: RENAL CELL CARCINOMA
     Dosage: 800 MG, QD
     Dates: start: 20170630
  3. ACETAMINOPHEN. [Concomitant]
     Active Substance: ACETAMINOPHEN
  4. TAMADOL [Concomitant]
     Active Substance: TRAMADOL HYDROCHLORIDE

REACTIONS (15)
  - Postoperative abscess [None]
  - Renal neoplasm [None]
  - Insomnia [Recovered/Resolved]
  - Off label use [None]
  - Abscess [Recovering/Resolving]
  - Nausea [Not Recovered/Not Resolved]
  - Hospitalisation [Recovered/Resolved]
  - Incision site abscess [Recovering/Resolving]
  - Procedural pain [Not Recovered/Not Resolved]
  - Abscess drainage [None]
  - Hypertension [Not Recovered/Not Resolved]
  - Off label use [None]
  - Pain [None]
  - Vomiting [Not Recovered/Not Resolved]
  - Fatigue [Not Recovered/Not Resolved]

NARRATIVE: CASE EVENT DATE: 20170630
